FAERS Safety Report 6304922-6 (Version None)
Quarter: 2009Q3

REPORT INFORMATION
  Report Type: 
  Country: None (occurrence: None)
  Receive Date: 20090806
  Receipt Date: 20090727
  Transmission Date: 20100115
  Serious: Yes (Death)
  Sender: FDA-Public Use
  Company Number: 2009AP003065

PATIENT
  Age: 75 Year
  Sex: 0

DRUGS (18)
  1. SERTRALINE HYDROCHLORIDE [Suspect]
     Indication: DEPRESSION
     Dosage: 50 MG; PO
     Route: 048
     Dates: start: 20090508
  2. AMITRIPTYLINE HYDROCHLORIDE [Concomitant]
  3. BECLOMETHASONE DIPROPIONATE [Concomitant]
  4. CEPHALEXIN [Concomitant]
  5. CITALOPRAM HYDROBROMIDE [Concomitant]
  6. CODEINE PHOSPHATE (CODEINE PHOSPHATE) [Concomitant]
  7. PARACETAMOL (PARACETAMOL) [Concomitant]
  8. FINASTERIDE [Concomitant]
  9. POTASSIUM BICARBONATE (POTASSIUM BICARBONATE) [Concomitant]
  10. SODIUM ALGINATE (SODIUM ALGINATE) [Concomitant]
  11. OMEPRAZOLE [Concomitant]
  12. PARACETAMOL (PARACETAMOL) [Concomitant]
  13. PREDNISOLONE [Concomitant]
  14. RABEPRAZOLE SODIUM [Concomitant]
  15. TAMSULOSIN HCL [Concomitant]
  16. TEMAZEPAM [Concomitant]
  17. TRIMETHOPRIM [Concomitant]
  18. ZOPICLONE (ZOPICLONE) [Concomitant]

REACTIONS (1)
  - COMPLETED SUICIDE [None]
